FAERS Safety Report 7611987-8 (Version None)
Quarter: 2011Q3

REPORT INFORMATION
  Report Type: 
  Country: None (occurrence: None)
  Receive Date: 20110715
  Receipt Date: 20110708
  Transmission Date: 20111222
  Serious: Yes (Other)
  Sender: FDA-Public Use
  Company Number: US-JNJFOC-20110201182

PATIENT
  Sex: Male

DRUGS (10)
  1. LEVAQUIN [Suspect]
     Indication: BRONCHITIS
     Route: 048
     Dates: start: 19990501
  2. PREDNISONE [Suspect]
     Indication: OTITIS MEDIA ACUTE
     Route: 065
  3. METHYLPREDNISOLONE [Suspect]
     Indication: PRODUCT USED FOR UNKNOWN INDICATION
     Route: 048
  4. PREDNISONE [Suspect]
     Indication: BRONCHITIS
     Route: 065
  5. CIPROFLOXACIN [Suspect]
     Indication: PRODUCT USED FOR UNKNOWN INDICATION
     Route: 048
  6. LEVAQUIN [Suspect]
     Indication: SINUSITIS
     Route: 048
     Dates: start: 19990501
  7. PREDNISONE [Suspect]
     Indication: SINUSITIS
     Route: 065
  8. LEVAQUIN [Suspect]
     Indication: RENAL COLIC
     Route: 042
     Dates: start: 20071208
  9. AVELOX [Suspect]
     Indication: SINUSITIS
     Route: 065
     Dates: start: 20020501
  10. LEVAQUIN [Suspect]
     Indication: OTITIS MEDIA ACUTE
     Route: 048
     Dates: start: 19990501

REACTIONS (5)
  - LIGAMENT RUPTURE [None]
  - TENDON RUPTURE [None]
  - LIGAMENT LAXITY [None]
  - JOINT INSTABILITY [None]
  - TENOSYNOVITIS [None]
